FAERS Safety Report 7202818-9 (Version None)
Quarter: 2010Q4

REPORT INFORMATION
  Report Type: 
  Country: None (occurrence: None)
  Receive Date: 20101216
  Receipt Date: 20101208
  Transmission Date: 20110411
  Serious: Yes (Other)
  Sender: FDA-Public Use
  Company Number: ABAUS-10-0686

PATIENT
  Age: 67 Year
  Sex: Female

DRUGS (4)
  1. ABRAXANE [Suspect]
     Indication: BREAST CANCER METASTATIC
     Dosage: (160 MG)
     Dates: start: 20100705
  2. HERCEPTIN [Suspect]
     Indication: BREAST CANCER METASTATIC
  3. ONDANSETRON [Concomitant]
  4. DEXAMETHASONE [Concomitant]

REACTIONS (1)
  - PNEUMONITIS [None]
